FAERS Safety Report 4313223-7 (Version None)
Quarter: 2004Q1

REPORT INFORMATION
  Report Type: 
  Country: None (occurrence: None)
  Receive Date: 20040305
  Receipt Date: 20040210
  Transmission Date: 20041129
  Serious: Yes (Hospitalization)
  Sender: FDA-Public Use
  Company Number: A-US2004-04181

PATIENT
  Age: 81 Year
  Sex: Male

DRUGS (14)
  1. TRACLEER [Suspect]
     Indication: PULMONARY HYPERTENSION
     Dosage: SEE IMAGE
     Route: 048
     Dates: start: 20030818, end: 20031203
  2. TRACLEER [Suspect]
     Indication: PULMONARY HYPERTENSION
     Dosage: SEE IMAGE
     Route: 048
     Dates: start: 20031204, end: 20040206
  3. TRACLEER [Suspect]
     Indication: PULMONARY HYPERTENSION
     Dosage: SEE IMAGE
     Route: 048
     Dates: start: 20040207
  4. ZOCOR [Concomitant]
  5. HYTRIN [Concomitant]
  6. LANOXIN [Concomitant]
  7. FUROSEMIDE [Concomitant]
  8. PROPRANOLOL [Concomitant]
  9. RYTHMOL [Concomitant]
  10. KCL TAB [Concomitant]
  11. ASPIRIN [Concomitant]
  12. MIACALCIN [Concomitant]
  13. MULTIVITAMINS (ASCORBIC ACID, ERGOCALCIFEROL, FOLIC ACID, NICOTINAMIDE [Concomitant]
  14. ZAROXOLYN [Concomitant]

REACTIONS (10)
  - ASTHENIA [None]
  - BLOOD ELECTROLYTES ABNORMAL [None]
  - CONFUSIONAL STATE [None]
  - DEHYDRATION [None]
  - DELUSION [None]
  - FALL [None]
  - FATIGUE [None]
  - HALLUCINATION [None]
  - SOMNOLENCE [None]
  - SPEECH DISORDER [None]
